FAERS Safety Report 5127871-8 (Version None)
Quarter: 2006Q4

REPORT INFORMATION
  Report Type: 
  Country: None (occurrence: None)
  Receive Date: 20061010
  Receipt Date: 20060927
  Transmission Date: 20070319
  Serious: Yes (Hospitalization, Other)
  Sender: FDA-Public Use
  Company Number: HQWYE392029SEP06

PATIENT
  Age: 72 Year
  Sex: Female

DRUGS (1)
  1. ETODOLAC [Suspect]
     Indication: NECK PAIN
     Route: 048
     Dates: start: 20060801, end: 20060901

REACTIONS (1)
  - EPIDERMAL NECROSIS [None]
